FAERS Safety Report 24591766 (Version 1)
Quarter: 2024Q4

REPORT INFORMATION
  Report Type: Spontaneous
  Country: CA (occurrence: CA)
  Receive Date: 20241108
  Receipt Date: 20241108
  Transmission Date: 20250114
  Serious: Yes (Other)
  Sender: EMD SERONO INC
  Company Number: CA-Merck Healthcare KGaA-2024056732

PATIENT
  Age: 70 Year
  Sex: Female

DRUGS (2)
  1. MAVENCLAD [Suspect]
     Active Substance: CLADRIBINE
     Indication: Multiple sclerosis
     Dosage: YEAR ONE THERAPY
     Dates: start: 20230608, end: 20230712
  2. MAVENCLAD [Suspect]
     Active Substance: CLADRIBINE
     Dosage: SECOND YEAR THERAPY
     Dates: end: 20240813

REACTIONS (3)
  - Scar [Recovered/Resolved]
  - Lymphocyte count decreased [Recovering/Resolving]
  - Eye infection [Unknown]

NARRATIVE: CASE EVENT DATE: 20240101
